FAERS Safety Report 8270659-X (Version None)
Quarter: 2012Q1

REPORT INFORMATION
  Report Type: 
  Country: None (occurrence: None)
  Receive Date: 20120327
  Receipt Date: 20100524
  Transmission Date: 20120608
  Serious: Yes (Other)
  Sender: FDA-Public Use
  Company Number: PHEH2010US01320

PATIENT
  Age: 73 Year
  Sex: Female

DRUGS (2)
  1. GLEEVEC [Suspect]
     Indication: MALIGNANT SOFT TISSUE NEOPLASM
     Dosage: 400 MG, ONCE A DAY, 300 MG, QD, ORAL
     Route: 048
     Dates: start: 20091201
  2. GLEEVEC [Suspect]
     Indication: MALIGNANT SOFT TISSUE NEOPLASM
     Dosage: 400 MG, ONCE A DAY, 300 MG, QD, ORAL
     Route: 048
     Dates: start: 20100126

REACTIONS (18)
  - EAR DISORDER [None]
  - MALAISE [None]
  - OEDEMA PERIPHERAL [None]
  - URINE COLOUR ABNORMAL [None]
  - FATIGUE [None]
  - DEPRESSION [None]
  - LACRIMATION INCREASED [None]
  - RASH GENERALISED [None]
  - SKIN CHAPPED [None]
  - ARTHRALGIA [None]
  - CHILLS [None]
  - BLISTER [None]
  - DRY SKIN [None]
  - RASH [None]
  - OCULAR HYPERAEMIA [None]
  - EYE OEDEMA [None]
  - ALOPECIA [None]
  - SINUS DISORDER [None]
